FAERS Safety Report 12432790 (Version 1)
Quarter: 2016Q2

REPORT INFORMATION
  Report Type: Spontaneous
  Country: US (occurrence: US)
  Receive Date: 20160603
  Receipt Date: 20160603
  Transmission Date: 20160815
  Serious: Yes (Other)
  Sender: FDA-Public Use
  Company Number: US-DSJP-DSU-2015-121034

PATIENT
  Age: 58 Year
  Sex: Female
  Weight: 70.2 kg

DRUGS (4)
  1. BENICAR HCT [Suspect]
     Active Substance: HYDROCHLOROTHIAZIDE\OLMESARTAN MEDOXOMIL
     Indication: HYPERTENSION
     Dosage: 20/12.5 MG, QD
     Dates: start: 200810, end: 201112
  2. BENICAR HCT [Suspect]
     Active Substance: HYDROCHLOROTHIAZIDE\OLMESARTAN MEDOXOMIL
     Dosage: 40/12.5 MG, QD
     Dates: start: 201112, end: 201402
  3. BENICAR HCT [Suspect]
     Active Substance: HYDROCHLOROTHIAZIDE\OLMESARTAN MEDOXOMIL
     Dosage: 20/12.5 MG, QD
     Dates: start: 201402, end: 201405
  4. BENICAR [Suspect]
     Active Substance: OLMESARTAN MEDOXOMIL
     Indication: PRODUCT USED FOR UNKNOWN INDICATION
     Dosage: UNK
     Dates: start: 200810

REACTIONS (8)
  - Renal failure [Unknown]
  - Gastrooesophageal reflux disease [Unknown]
  - Renal disorder [Unknown]
  - C-reactive protein increased [Unknown]
  - Malabsorption [Unknown]
  - Haemorrhoids [Unknown]
  - Protein urine present [Unknown]
  - Dyspepsia [Unknown]

NARRATIVE: CASE EVENT DATE: 201405
